FAERS Safety Report 24416459 (Version 2)
Quarter: 2024Q4

REPORT INFORMATION
  Report Type: Spontaneous
  Country: GB (occurrence: GB)
  Receive Date: 20241009
  Receipt Date: 20241104
  Transmission Date: 20250115
  Serious: Yes (Hospitalization, Other)
  Sender: TEVA
  Company Number: GB-TEVA-VS-3251026

PATIENT
  Age: 20 Year
  Sex: Female

DRUGS (8)
  1. PREDNISOLONE [Suspect]
     Active Substance: PREDNISOLONE
     Indication: Immune-mediated gastrointestinal disorder
     Dosage: FURTHER WEANED DOSE
     Route: 048
  2. PREDNISOLONE [Suspect]
     Active Substance: PREDNISOLONE
     Indication: Immune-mediated gastrointestinal disorder
     Dosage: 10MG DAILY DOSE WAS FURTHER REDUCED BY 1MG EVERY 2 WEEKS
     Route: 048
  3. PREDNISOLONE [Suspect]
     Active Substance: PREDNISOLONE
     Indication: Immune-mediated gastrointestinal disorder
     Route: 048
  4. PREDNISOLONE [Suspect]
     Active Substance: PREDNISOLONE
     Indication: Immune-mediated gastrointestinal disorder
     Dosage: REDUCED DOSE (ORIGINAL DOSE REDUCED BY 10MG EVERY 2 WEEKS DOWN TO 10MG DAILY)
     Route: 048
  5. PIPERACILLIN AND TAZOBACTAM [Suspect]
     Active Substance: PIPERACILLIN SODIUM\TAZOBACTAM SODIUM
     Indication: Antibiotic therapy
     Route: 042
  6. AMOXICILLIN [Suspect]
     Active Substance: AMOXICILLIN
     Indication: Antibiotic therapy
     Route: 042
  7. MYCOPHENOLATE MOFETIL [Concomitant]
     Active Substance: MYCOPHENOLATE MOFETIL
     Indication: Immune-mediated gastrointestinal disorder
  8. SULFAMETHOXAZOLE\TRIMETHOPRIM [Suspect]
     Active Substance: SULFAMETHOXAZOLE\TRIMETHOPRIM
     Indication: Antibiotic therapy
     Route: 042

REACTIONS (3)
  - Diarrhoea [Unknown]
  - Steroid withdrawal syndrome [Unknown]
  - Presyncope [Unknown]
